FAERS Safety Report 13096915 (Version 1)
Quarter: 2017Q1

REPORT INFORMATION
  Report Type: Spontaneous
  Country: US (occurrence: US)
  Receive Date: 20170106
  Receipt Date: 20170106
  Transmission Date: 20170428
  Serious: Yes (Hospitalization)
  Sender: FDA-Public Use
  Company Number: None

PATIENT
  Age: 67 Year
  Sex: Male
  Weight: 87.8 kg

DRUGS (3)
  1. SELINEXOR [Suspect]
     Active Substance: SELINEXOR
     Indication: PANCREATIC CARCINOMA
     Dosage: 50 MG DAYS 1, 8, 15 PO
     Route: 048
  2. ABRAXANE [Suspect]
     Active Substance: PACLITAXEL
     Dosage: ABRAXANE 125MG/M2  DAYS 1, 8, 15 IV
     Route: 042
  3. GEMCITABINE [Suspect]
     Active Substance: GEMCITABINE\GEMCITABINE HYDROCHLORIDE
     Dosage: GEM 1000MG/M2 DAYS 1, 8, 15 IV?
     Route: 042

REACTIONS (3)
  - Constipation [None]
  - Treatment noncompliance [None]
  - Abdominal pain [None]

NARRATIVE: CASE EVENT DATE: 20161011
